FAERS Safety Report 24153132 (Version 4)
Quarter: 2024Q3

REPORT INFORMATION
  Report Type: Spontaneous
  Country: CA (occurrence: CA)
  Receive Date: 20240730
  Receipt Date: 20240918
  Transmission Date: 20241016
  Serious: Yes (Hospitalization, Other)
  Sender: TEVA
  Company Number: CA-TEVA-VS-3224807

PATIENT
  Age: 17 Year
  Sex: Female

DRUGS (38)
  1. DULOXETINE [Suspect]
     Active Substance: DULOXETINE
     Indication: Pain
     Dosage: DESCRIPTION: TEVA-DULOXETINE
     Route: 065
  2. COLCHICINE [Concomitant]
     Active Substance: COLCHICINE
     Indication: Type III immune complex mediated reaction
     Route: 065
  3. DICLOFENAC [Suspect]
     Active Substance: DICLOFENAC
     Indication: Injection site pain
     Route: 061
  4. INSULIN DEGLUDEC [Concomitant]
     Active Substance: INSULIN DEGLUDEC
     Indication: Type 1 diabetes mellitus
     Route: 058
  5. INSULIN DEGLUDEC [Concomitant]
     Active Substance: INSULIN DEGLUDEC
     Indication: Type 1 diabetes mellitus
     Route: 065
  6. PREGABALIN [Suspect]
     Active Substance: PREGABALIN
     Indication: Injection site pain
     Route: 065
  7. PREGABALIN [Suspect]
     Active Substance: PREGABALIN
     Indication: Injection site pain
     Route: 048
  8. PREGABALIN [Suspect]
     Active Substance: PREGABALIN
     Indication: Injection site pain
     Route: 048
  9. INSULIN GLARGINE [Concomitant]
     Active Substance: INSULIN GLARGINE
     Indication: Type 1 diabetes mellitus
     Dosage: DOSE FORM: SOLUTION SUBCUTANEOUS
     Route: 058
  10. INSULIN GLARGINE [Concomitant]
     Active Substance: INSULIN GLARGINE
     Indication: Type 1 diabetes mellitus
     Dosage: DOSE FORM: SOLUTION SUBCUTANEOUS
     Route: 065
  11. INSULIN ASPART [Concomitant]
     Active Substance: INSULIN ASPART
     Indication: Type 1 diabetes mellitus
     Route: 058
  12. INSULIN ASPART [Concomitant]
     Active Substance: INSULIN ASPART
     Indication: Type 1 diabetes mellitus
     Route: 065
  13. INSULIN HUMAN [Suspect]
     Active Substance: INSULIN HUMAN
     Indication: Type 1 diabetes mellitus
     Route: 033
  14. COLCHICINE [Suspect]
     Active Substance: COLCHICINE
     Indication: Type III immune complex mediated reaction
     Route: 065
  15. UNSPECIFIED INGREDIENT [Concomitant]
     Active Substance: UNSPECIFIED INGREDIENT
     Indication: Type 1 diabetes mellitus
     Route: 065
  16. UNSPECIFIED INGREDIENT [Concomitant]
     Active Substance: UNSPECIFIED INGREDIENT
     Indication: Type 1 diabetes mellitus
     Dosage: DOSE FORM: GLOBULES ORAL
     Route: 058
  17. UNSPECIFIED INGREDIENT [Concomitant]
     Active Substance: UNSPECIFIED INGREDIENT
     Indication: Type 1 diabetes mellitus
     Dosage: DOSE FORM: GLOBULES ORAL
     Route: 065
  18. INSULIN GLULISINE [Concomitant]
     Active Substance: INSULIN GLULISINE
     Indication: Type 1 diabetes mellitus
     Dosage: DESCRIPTION: INSULIN GLULISINE (RECOMBINANT DNA ORIGIN)
     Route: 058
  19. INSULIN GLULISINE [Concomitant]
     Active Substance: INSULIN GLULISINE
     Indication: Type 1 diabetes mellitus
     Dosage: DESCRIPTION: INSULIN GLULISINE (RECOMBINANT DNA ORIGIN)
     Route: 065
  20. TACROLIMUS [Suspect]
     Active Substance: TACROLIMUS
     Indication: Type III immune complex mediated reaction
     Route: 065
  21. METHOTREXATE SODIUM [Suspect]
     Active Substance: METHOTREXATE SODIUM
     Indication: Product used for unknown indication
     Route: 065
  22. KETAMINE [Suspect]
     Active Substance: KETAMINE
     Indication: Pain
     Route: 061
  23. KETAMINE [Suspect]
     Active Substance: KETAMINE
     Indication: Pain
     Route: 065
  24. EMLA [Suspect]
     Active Substance: LIDOCAINE\PRILOCAINE
     Indication: Injection site pain
     Route: 065
  25. EMLA [Suspect]
     Active Substance: LIDOCAINE\PRILOCAINE
     Indication: Injection site pain
     Route: 061
  26. LIDOCAINE [Suspect]
     Active Substance: LIDOCAINE
     Indication: Pain
     Route: 065
  27. LIDOCAINE [Suspect]
     Active Substance: LIDOCAINE
     Indication: Pain
     Dosage: DOSE FORM: OINTMENT TOPICAL
     Route: 061
  28. LIDOCAINE [Suspect]
     Active Substance: LIDOCAINE
     Indication: Pain
     Route: 061
  29. NAPROXEN [Suspect]
     Active Substance: NAPROXEN
     Indication: Pain
     Route: 065
  30. HYDROXYCHLOROQUINE [Suspect]
     Active Substance: HYDROXYCHLOROQUINE
     Indication: Type III immune complex mediated reaction
     Route: 065
  31. INSULIN LISPRO [Concomitant]
     Active Substance: INSULIN LISPRO
     Indication: Type 1 diabetes mellitus
     Route: 065
  32. INSULIN LISPRO [Concomitant]
     Active Substance: INSULIN LISPRO
     Indication: Type 1 diabetes mellitus
     Route: 058
  33. METHOTREXATE [Concomitant]
     Active Substance: METHOTREXATE
     Indication: Product used for unknown indication
     Route: 065
  34. HYDROXYCHLOROQUINE [Concomitant]
     Active Substance: HYDROXYCHLOROQUINE
     Indication: Type III immune complex mediated reaction
     Route: 065
  35. INSULIN HUMAN [Concomitant]
     Active Substance: INSULIN HUMAN
     Indication: Type 1 diabetes mellitus
     Route: 033
  36. TACROLIMUS [Concomitant]
     Active Substance: TACROLIMUS
     Indication: Type III immune complex mediated reaction
     Route: 065
  37. VOLTAREN [Suspect]
     Active Substance: DICLOFENAC SODIUM
     Indication: Injection site pain
     Route: 065
  38. VOLTAREN [Suspect]
     Active Substance: DICLOFENAC SODIUM
     Indication: Injection site pain
     Route: 061

REACTIONS (8)
  - Condition aggravated [Unknown]
  - Therapy partial responder [Unknown]
  - Therapy non-responder [Unknown]
  - Drug ineffective [Unknown]
  - Medical device site cellulitis [Unknown]
  - Off label use [Unknown]
  - Medical device site abscess [Unknown]
  - Drug ineffective for unapproved indication [Unknown]
